FAERS Safety Report 9408769 (Version 1)
Quarter: 2013Q3

REPORT INFORMATION
  Report Type: Report from Study
  Country: FR (occurrence: FR)
  Receive Date: 20130719
  Receipt Date: 20130719
  Transmission Date: 20140515
  Serious: Yes (Other)
  Sender: FDA-Public Use
  Company Number: FR-ROCHE-1250536

PATIENT
  Age: 43 Year
  Sex: Female

DRUGS (1)
  1. ZELBORAF [Suspect]
     Indication: MALIGNANT MELANOMA
     Route: 065

REACTIONS (2)
  - Panniculitis [Not Recovered/Not Resolved]
  - Pyrexia [Not Recovered/Not Resolved]
